FAERS Safety Report 9812852 (Version 1)
Quarter: 2014Q1

REPORT INFORMATION
  Report Type: Spontaneous
  Country: US (occurrence: US)
  Receive Date: 20140113
  Receipt Date: 20140113
  Transmission Date: 20141002
  Serious: No
  Sender: FDA-Public Use
  Company Number: US-PFIZER INC-2014004340

PATIENT
  Age: 65 Year
  Sex: Female

DRUGS (11)
  1. LYRICA [Suspect]
     Indication: PAIN
     Dosage: 75 MG, TAKE 1 CAPSULE TWICE DAILY
     Route: 048
     Dates: start: 20130403
  2. ALPRAZOLAM [Concomitant]
     Dosage: 0.5 MG, 1/2 TO 1 TABLET TWICE DAILY AS NEEDED
     Route: 048
     Dates: start: 20130509
  3. ALPRAZOLAM [Concomitant]
     Dosage: 0.5 MG, 3X/DAY (1 TABLET BY MOUTH THREE TIMES DAILY)
     Route: 048
     Dates: start: 20130920
  4. BENICAR [Concomitant]
     Dosage: 20 MG, DAILY
     Route: 048
     Dates: start: 20130920
  5. ERYTHROMYCIN ETHYLSUCCINATE [Concomitant]
     Dosage: 400 MG, 1 TABLET TWICE DAILY
     Route: 048
     Dates: start: 20130920
  6. ESTRADIOL [Concomitant]
     Dosage: 1 MG, ONE TABLET EVERY DAY
     Route: 048
     Dates: start: 20090523
  7. LEVOTHYROXINE SODIUM [Concomitant]
     Dosage: 75 UG, TAKE ONE TABLET EVERY DAY
     Route: 048
     Dates: start: 20100707
  8. METHOCARBAMOL [Concomitant]
     Indication: MUSCLE SPASMS
     Dosage: 500 MG, TAKE ONE TABLET THREE TIMES A DAY AS NEEDED
     Route: 048
     Dates: start: 20120202
  9. PROCHLORPERAZINE MALEATE [Concomitant]
     Indication: NAUSEA
     Dosage: 10MG ORAL TABLET
     Route: 048
     Dates: start: 20111202
  10. PROCHLORPERAZINE MALEATE [Concomitant]
     Indication: VOMITING
     Dosage: 10 MG, EVERY 8 HOURS AS NEEDED
     Route: 048
     Dates: start: 20120524
  11. TRAMADOL HYDROCHLORIDE [Concomitant]
     Dosage: 50 MG, TABLET TAKE 1-2 TABLET 3 TIMES DAILY AS NEEDED
     Route: 048
     Dates: start: 20131105

REACTIONS (3)
  - Muscle spasms [Unknown]
  - Nausea [Unknown]
  - Vomiting [Unknown]
